FAERS Safety Report 13569475 (Version 1)
Quarter: 2017Q2

REPORT INFORMATION
  Report Type: Spontaneous
  Country: GB (occurrence: GB)
  Receive Date: 20170522
  Receipt Date: 20170522
  Transmission Date: 20170830
  Serious: Yes (Other)
  Sender: FDA-Public Use
  Company Number: GB-NOVOPROD-545438

PATIENT
  Age: 69 Year
  Sex: Female

DRUGS (2)
  1. KLIOVANCE [Suspect]
     Active Substance: ESTRADIOL\NORETHINDRONE ACETATE
     Indication: HORMONE REPLACEMENT THERAPY
     Dosage: UNK
     Route: 065
  2. KLIOVANCE [Suspect]
     Active Substance: ESTRADIOL\NORETHINDRONE ACETATE
     Dosage: HALF DOSE
     Route: 065

REACTIONS (3)
  - Wrong technique in product usage process [Unknown]
  - Breast cyst [Recovered/Resolved]
  - Intentional underdose [Unknown]
